FAERS Safety Report 11523627 (Version 1)
Quarter: 2015Q3

REPORT INFORMATION
  Report Type: Spontaneous
  Country: US (occurrence: US)
  Receive Date: 20150903
  Receipt Date: 20150903
  Transmission Date: 20151125
  Serious: Yes (Other)
  Sender: FDA-Public Use
  Company Number: US-ELI_LILLY_AND_COMPANY-US201303004774

PATIENT
  Sex: Male

DRUGS (2)
  1. CYMBALTA [Suspect]
     Active Substance: DULOXETINE HYDROCHLORIDE
     Indication: MAJOR DEPRESSION
     Dosage: 30 MG, UNKNOWN
     Dates: start: 201208
  2. CYMBALTA [Suspect]
     Active Substance: DULOXETINE HYDROCHLORIDE
     Dosage: 60 MG, UNKNOWN
     Dates: end: 20130309

REACTIONS (4)
  - Dyspnoea [Unknown]
  - Dysarthria [Unknown]
  - Suicidal ideation [Unknown]
  - Dizziness [Unknown]

NARRATIVE: CASE EVENT DATE: 20130309
